FAERS Safety Report 4839184-X (Version None)
Quarter: 2005Q4

REPORT INFORMATION
  Report Type: 
  Country: None (occurrence: None)
  Receive Date: 20051031
  Receipt Date: 20050706
  Transmission Date: 20060501
  Serious: Yes (Other)
  Sender: FDA-Public Use
  Company Number: 200515038US

PATIENT
  Sex: Male

DRUGS (1)
  1. KETEK [Suspect]
     Indication: PNEUMONIA
     Dosage: 800 MG QD PO
     Route: 048

REACTIONS (5)
  - CONTUSION [None]
  - DIZZINESS [None]
  - EPISTAXIS [None]
  - MALAISE [None]
  - SYNCOPE [None]
